FAERS Safety Report 8827833 (Version 2)
Quarter: 2012Q4

REPORT INFORMATION
  Report Type: 
  Country: JP (occurrence: JP)
  Receive Date: 20121005
  Receipt Date: 20121012
  Transmission Date: 20130627
  Serious: No
  Sender: FDA-Public Use
  Company Number: JP-PFIZER INC-2012243111

PATIENT
  Age: 72 Year
  Sex: Male

DRUGS (2)
  1. SALAZOPYRIN [Suspect]
     Indication: COLITIS ULCERATIVE
     Dosage: UNK
     Dates: start: 2001
  2. SALAZOPYRIN [Suspect]
     Dosage: 3000mg daily
     Route: 048

REACTIONS (1)
  - Amylase increased [Not Recovered/Not Resolved]
